FAERS Safety Report 4638485-8 (Version None)
Quarter: 2005Q2

REPORT INFORMATION
  Report Type: 
  Country: None (occurrence: None)
  Receive Date: 20050418
  Receipt Date: 20050324
  Transmission Date: 20051028
  Serious: Yes (Death)
  Sender: FDA-Public Use
  Company Number: GBS050316995

PATIENT
  Age: 66 Year
  Sex: Female
  Weight: 65 kg

DRUGS (6)
  1. XIGRIS [Suspect]
     Indication: MULTI-ORGAN FAILURE
     Dosage: 15.6 ML/HR
     Dates: start: 20050310, end: 20050313
  2. METRONIDAZOLE [Concomitant]
  3. MEROPENEM [Concomitant]
  4. TEICOPLANIN [Concomitant]
  5. FLUCONAZOLE [Concomitant]
  6. CIPROFLOXACIN [Concomitant]

REACTIONS (2)
  - ACUTE RESPIRATORY DISTRESS SYNDROME [None]
  - CEREBRAL HAEMORRHAGE [None]
